FAERS Safety Report 6071485-2 (Version None)
Quarter: 2009Q1

REPORT INFORMATION
  Report Type: 
  Country: None (occurrence: None)
  Receive Date: 20090206
  Receipt Date: 20090206
  Transmission Date: 20090719
  Serious: Yes (Life-Threatening, Hospitalization, Disabling)
  Sender: FDA-Public Use
  Company Number: None

PATIENT
  Age: 8 Year
  Sex: Female

DRUGS (1)
  1. SINGULAIR [Suspect]

REACTIONS (9)
  - ABDOMINAL PAIN UPPER [None]
  - ARTHRALGIA [None]
  - CONVULSION [None]
  - DEPRESSION [None]
  - MUSCLE SPASMS [None]
  - PRURITUS [None]
  - RASH [None]
  - SUICIDE ATTEMPT [None]
  - VISUAL IMPAIRMENT [None]
